FAERS Safety Report 4299948-0 (Version None)
Quarter: 2004Q1

REPORT INFORMATION
  Report Type: 
  Country: None (occurrence: None)
  Receive Date: 20040220
  Receipt Date: 20040212
  Transmission Date: 20041129
  Serious: Yes (Hospitalization)
  Sender: FDA-Public Use
  Company Number: PHRM2004FR00833

PATIENT
  Age: 57 Year
  Sex: Female

DRUGS (3)
  1. LEPONEX [Suspect]
     Indication: SCHIZOPHRENIA, RESIDUAL TYPE
     Dosage: 300 MG, DAILY
     Route: 048
     Dates: start: 20010215, end: 20031226
  2. NOZINAN [Suspect]
     Indication: SCHIZOPHRENIA, RESIDUAL TYPE
     Dosage: 75 MG, DAILY
     Route: 048
     Dates: start: 20010215, end: 20031226
  3. RIVOTRIL [Concomitant]
     Dosage: 4 MG, DAILY
     Route: 048
     Dates: start: 20010215

REACTIONS (4)
  - ANAEMIA [None]
  - NEUTROPENIA [None]
  - PANCYTOPENIA [None]
  - PYREXIA [None]
